FAERS Safety Report 23779632 (Version 1)
Quarter: 2024Q2

REPORT INFORMATION
  Report Type: Spontaneous
  Country: CN (occurrence: None)
  Receive Date: 20240424
  Receipt Date: 20240424
  Transmission Date: 20240716
  Serious: Yes (Life-Threatening, Hospitalization)
  Sender: FDA-Public Use
  Company Number: 2024A097640

PATIENT
  Age: 25604 Day
  Sex: Male
  Weight: 78 kg

DRUGS (1)
  1. TAGRISSO [Suspect]
     Active Substance: OSIMERTINIB
     Indication: Lung neoplasm malignant
     Route: 048
     Dates: start: 20231118, end: 20240319

REACTIONS (2)
  - Cardiogenic shock [Not Recovered/Not Resolved]
  - Cardiac failure [Not Recovered/Not Resolved]

NARRATIVE: CASE EVENT DATE: 20240322
